FAERS Safety Report 21276012 (Version 1)
Quarter: 2022Q3

REPORT INFORMATION
  Report Type: Spontaneous
  Country: US (occurrence: US)
  Receive Date: 20220831
  Receipt Date: 20220831
  Transmission Date: 20221026
  Serious: Yes (Hospitalization)
  Sender: FDA-Public Use
  Company Number: US-ABBVIE-22K-163-4326357-00

PATIENT
  Sex: Male
  Weight: 75.364 kg

DRUGS (1)
  1. HUMIRA [Suspect]
     Active Substance: ADALIMUMAB
     Indication: Crohn^s disease
     Route: 058
     Dates: start: 201207

REACTIONS (3)
  - Cerebrovascular accident [Recovering/Resolving]
  - Myocardial infarction [Unknown]
  - Stent placement [Unknown]

NARRATIVE: CASE EVENT DATE: 20150101
